FAERS Safety Report 22287794 (Version 1)
Quarter: 2023Q2

REPORT INFORMATION
  Report Type: Spontaneous
  Country: US (occurrence: US)
  Receive Date: 20230505
  Receipt Date: 20230505
  Transmission Date: 20230722
  Serious: No
  Sender: FDA-Public Use
  Company Number: US-SA-SAC20230503001116

PATIENT
  Sex: Male
  Weight: 110 kg

DRUGS (5)
  1. DUPIXENT [Suspect]
     Active Substance: DUPILUMAB
     Indication: Dermatitis atopic
     Dosage: 300 MG, QOW
     Route: 058
  2. MINERALS\VITAMINS [Concomitant]
     Active Substance: MINERALS\VITAMINS
  3. CLARITIN-D 12 HOUR [Concomitant]
     Active Substance: LORATADINE\PSEUDOEPHEDRINE SULFATE
  4. LISINOPRIL [Concomitant]
     Active Substance: LISINOPRIL
  5. ALLER FLO [Concomitant]

REACTIONS (3)
  - Eczema [Recovering/Resolving]
  - Injection site swelling [Unknown]
  - Injection site erythema [Unknown]
